FAERS Safety Report 6450915-8 (Version None)
Quarter: 2009Q4

REPORT INFORMATION
  Report Type: 
  Country: None (occurrence: None)
  Receive Date: 20091123
  Receipt Date: 20091117
  Transmission Date: 20100525
  Serious: Yes (Hospitalization)
  Sender: FDA-Public Use
  Company Number: A0775508A

PATIENT
  Age: 64 Year
  Sex: Male
  Weight: 153.6 kg

DRUGS (9)
  1. AVANDIA [Suspect]
     Indication: DIABETES MELLITUS
     Dosage: 4MG TWICE PER DAY
     Route: 048
     Dates: end: 20070605
  2. AVANDAMET [Suspect]
     Route: 048
     Dates: start: 20041201
  3. METFORMIN HCL [Concomitant]
  4. AVALIDE [Concomitant]
  5. PRILOSEC [Concomitant]
  6. ALLOPURINOL [Concomitant]
  7. LASIX [Concomitant]
  8. TEMAZEPAM [Concomitant]
  9. CADUET [Concomitant]

REACTIONS (1)
  - MYOCARDIAL INFARCTION [None]
